FAERS Safety Report 4987860-0 (Version None)
Quarter: 2006Q2

REPORT INFORMATION
  Report Type: 
  Country: None (occurrence: None)
  Receive Date: 20060419
  Receipt Date: 20060410
  Transmission Date: 20061013
  Serious: Yes (Other)
  Sender: FDA-Public Use
  Company Number: THYM-10937

PATIENT
  Age: 53 Year
  Sex: Male
  Weight: 85 kg

DRUGS (5)
  1. THYMOGLOBULIN [Suspect]
     Indication: LIVER TRANSPLANT
     Dosage: 120 MG ONCE IV
     Route: 042
  2. AMPICILLIN SODIUM [Concomitant]
  3. METHYLPREDNISOLONE [Concomitant]
  4. CHLORPHENIRAMINE MALEATE [Concomitant]
  5. ACETAMINOPHEN [Concomitant]

REACTIONS (9)
  - BLOOD PRESSURE INCREASED [None]
  - CARDIAC INDEX INCREASED [None]
  - CARDIOVASCULAR DISORDER [None]
  - HAEMODIALYSIS [None]
  - HYPOTENSION [None]
  - RENAL FAILURE ACUTE [None]
  - SERUM SICKNESS [None]
  - TACHYCARDIA [None]
  - VASCULAR RESISTANCE SYSTEMIC DECREASED [None]
